FAERS Safety Report 6484808-7 (Version None)
Quarter: 2009Q4

REPORT INFORMATION
  Report Type: 
  Country: None (occurrence: None)
  Receive Date: 20091209
  Receipt Date: 20090707
  Transmission Date: 20100525
  Serious: Yes (Hospitalization)
  Sender: FDA-Public Use
  Company Number: A0788561A

PATIENT
  Age: 51 Year
  Sex: Male

DRUGS (3)
  1. AVANDAMET [Suspect]
     Route: 065
     Dates: start: 20050901, end: 20051001
  2. AVANDIA [Suspect]
     Dosage: 4MG PER DAY
     Route: 065
     Dates: start: 20050907, end: 20070611
  3. ROSIGLITAZONE MALEATE [Suspect]
     Route: 048
     Dates: start: 20050907, end: 20070611

REACTIONS (1)
  - CARDIAC FAILURE CONGESTIVE [None]
